FAERS Safety Report 10426851 (Version 1)
Quarter: 2014Q3

REPORT INFORMATION
  Report Type: Spontaneous
  Country: US (occurrence: None)
  Receive Date: 20140902
  Receipt Date: 20140902
  Transmission Date: 20150326
  Serious: No
  Sender: FDA-Public Use
  Company Number: None

PATIENT
  Age: 41 Year
  Sex: Female
  Weight: 88.45 kg

DRUGS (1)
  1. MOBIC [Suspect]
     Active Substance: MELOXICAM
     Indication: BACK PAIN
     Dosage: 1 PILL, ONCE DAILY, TAKEN BY MOUTH
     Route: 048
     Dates: start: 20140828, end: 20140828

REACTIONS (10)
  - Palpitations [None]
  - Rash [None]
  - Rash pruritic [None]
  - Burning sensation [None]
  - Rash generalised [None]
  - Hypertension [None]
  - Local swelling [None]
  - Peripheral swelling [None]
  - Skin swelling [None]
  - Feeling hot [None]

NARRATIVE: CASE EVENT DATE: 20140828
